FAERS Safety Report 9292586 (Version 1)
Quarter: 2013Q2

REPORT INFORMATION
  Report Type: Spontaneous
  Country: US (occurrence: US)
  Receive Date: 20130516
  Receipt Date: 20130516
  Transmission Date: 20140414
  Serious: Yes (Hospitalization)
  Sender: FDA-Public Use
  Company Number: US-JNJFOC-20130505589

PATIENT
  Sex: Female
  Weight: 76.39 kg

DRUGS (10)
  1. REMICADE [Suspect]
     Indication: CROHN^S DISEASE
     Route: 042
     Dates: start: 201209
  2. PROMETHAZINE [Concomitant]
     Indication: NAUSEA
     Route: 065
  3. ZANTAC [Concomitant]
     Route: 065
  4. BENTYL [Concomitant]
     Route: 065
  5. ZOFRAN [Concomitant]
     Indication: NAUSEA
     Route: 065
  6. CHANTIX [Concomitant]
     Indication: SMOKING CESSATION THERAPY
     Route: 065
  7. NEURONTIN [Concomitant]
     Route: 065
  8. BENADRYL [Concomitant]
     Indication: PREMEDICATION
     Route: 065
  9. TYLENOL [Concomitant]
     Indication: PREMEDICATION
     Route: 065
  10. ZYRTEC [Concomitant]
     Indication: PREMEDICATION
     Route: 065

REACTIONS (2)
  - Arthralgia [Recovered/Resolved]
  - Joint stiffness [Unknown]
